FAERS Safety Report 21358309 (Version 1)
Quarter: 2022Q3

REPORT INFORMATION
  Report Type: Spontaneous
  Country: US (occurrence: US)
  Receive Date: 20220921
  Receipt Date: 20220921
  Transmission Date: 20221027
  Serious: No
  Sender: FDA-Public Use
  Company Number: US-GSKCCFUS-Case-01497057_AE-85244

PATIENT
  Age: 65 Year
  Sex: Male

DRUGS (1)
  1. ANORO ELLIPTA [Suspect]
     Active Substance: UMECLIDINIUM BROMIDE\VILANTEROL TRIFENATATE
     Indication: Product used for unknown indication
     Dosage: 62.5 MCG/MG, 1D
     Route: 055
     Dates: start: 20200701, end: 20220914

REACTIONS (3)
  - Cough [Unknown]
  - Hernia [Unknown]
  - Drug ineffective [Unknown]

NARRATIVE: CASE EVENT DATE: 20220907
